FAERS Safety Report 4770878-0 (Version None)
Quarter: 2005Q3

REPORT INFORMATION
  Report Type: 
  Country: None (occurrence: None)
  Receive Date: 20050915
  Receipt Date: 20050906
  Transmission Date: 20060218
  Serious: Yes (Other)
  Sender: FDA-Public Use
  Company Number: US-ROCHE-417060

PATIENT
  Age: 35 Year
  Sex: Male

DRUGS (2)
  1. ACCUTANE [Suspect]
     Indication: DRUG USE FOR UNKNOWN INDICATION
     Route: 065
     Dates: end: 19970515
  2. ACCUTANE [Suspect]
     Route: 065

REACTIONS (3)
  - CHOLECYSTECTOMY [None]
  - LIVER FUNCTION TEST ABNORMAL [None]
  - PANCREATITIS [None]
